FAERS Safety Report 20470731 (Version 8)
Quarter: 2022Q3

REPORT INFORMATION
  Report Type: Report from Study
  Country: US (occurrence: US)
  Receive Date: 20220214
  Receipt Date: 20220924
  Transmission Date: 20221026
  Serious: Yes (Hospitalization)
  Sender: FDA-Public Use
  Company Number: US-NOVARTISPH-NVSC2022US030187

PATIENT
  Sex: Female

DRUGS (4)
  1. ENTRESTO [Suspect]
     Active Substance: SACUBITRIL\VALSARTAN
     Indication: Cardiac failure chronic
     Dosage: UNK
     Route: 065
  2. ENTRESTO [Suspect]
     Active Substance: SACUBITRIL\VALSARTAN
     Route: 065
  3. METOPROLOL [Concomitant]
     Active Substance: METOPROLOL
     Indication: Product used for unknown indication
     Dosage: UNK
     Route: 065
  4. METOPROLOL [Concomitant]
     Active Substance: METOPROLOL
     Dosage: 1 DOSAGE FORM, QD
     Route: 065

REACTIONS (10)
  - COVID-19 [Unknown]
  - Dyspnoea [Unknown]
  - Cough [Recovering/Resolving]
  - Contusion [Unknown]
  - Throat clearing [Unknown]
  - Tremor [Unknown]
  - Weight decreased [Unknown]
  - Insomnia [Unknown]
  - Weight increased [Unknown]
  - Hypersensitivity [Unknown]
